FAERS Safety Report 23024591 (Version 1)
Quarter: 2023Q4

REPORT INFORMATION
  Report Type: Spontaneous
  Country: US (occurrence: US)
  Receive Date: 20231004
  Receipt Date: 20231004
  Transmission Date: 20240109
  Serious: No
  Sender: FDA-Public Use
  Company Number: US-PADAGIS-2023PAD01385

PATIENT

DRUGS (1)
  1. TRETINOIN [Suspect]
     Active Substance: TRETINOIN
     Indication: Skin wrinkling
     Dosage: UNK, QD (AT NIGHT)
     Route: 061

REACTIONS (2)
  - Alopecia [Unknown]
  - Product use in unapproved indication [Unknown]
